FAERS Safety Report 8395206-3 (Version None)
Quarter: 2012Q1

REPORT INFORMATION
  Report Type: 
  Country: None (occurrence: None)
  Receive Date: 20120323
  Receipt Date: 20110411
  Transmission Date: 20120608
  Serious: Yes (Hospitalization)
  Sender: FDA-Public Use
  Company Number: 163-21880-11031839

PATIENT
  Age: 64 Year
  Sex: Male

DRUGS (6)
  1. ALBUTEROL [Concomitant]
  2. ATROVENT [Concomitant]
  3. FLOMAX [Concomitant]
  4. CARDIZEM [Concomitant]
  5. AVODART [Concomitant]
  6. REVLIMID [Suspect]
     Indication: MULTIPLE MYELOMA
     Dosage: 25 MG, DAILY X 14 DAYS, PO
     Route: 048
     Dates: start: 20101109, end: 20110210

REACTIONS (2)
  - PNEUMONIA [None]
  - WHITE BLOOD CELL COUNT DECREASED [None]
